FAERS Safety Report 5609269-9 (Version None)
Quarter: 2008Q1

REPORT INFORMATION
  Report Type: 
  Country: None (occurrence: None)
  Receive Date: 20080129
  Receipt Date: 20080129
  Transmission Date: 20080703
  Serious: No
  Sender: FDA-Public Use
  Company Number: None

PATIENT
  Age: 40 Year
  Sex: Female
  Weight: 61.2356 kg

DRUGS (2)
  1. CYMBALTA [Suspect]
     Indication: ANXIETY
     Dosage: 30MG DAILY PO
     Route: 048
     Dates: start: 20071210, end: 20080110
  2. CYMBALTA [Suspect]
     Indication: DEPRESSION
     Dosage: 30MG DAILY PO
     Route: 048
     Dates: start: 20071210, end: 20080110

REACTIONS (12)
  - ABDOMINAL PAIN UPPER [None]
  - ABNORMAL DREAMS [None]
  - BREAST PAIN [None]
  - CHEST PAIN [None]
  - DIARRHOEA [None]
  - DISSOCIATION [None]
  - DRUG WITHDRAWAL SYNDROME [None]
  - FEELING ABNORMAL [None]
  - HEADACHE [None]
  - INSOMNIA [None]
  - NAUSEA [None]
  - PARAESTHESIA [None]
